FAERS Safety Report 25735173 (Version 1)
Quarter: 2025Q3

REPORT INFORMATION
  Report Type: Spontaneous
  Country: US (occurrence: None)
  Receive Date: 20250827
  Receipt Date: 20250827
  Transmission Date: 20251020
  Serious: Yes (unspecified)
  Sender: FDA-CTU
  Company Number: None

PATIENT
  Age: 47 Year
  Sex: Female

DRUGS (3)
  1. SALICYLIC ACID [Suspect]
     Active Substance: SALICYLIC ACID
     Indication: Seborrhoeic dermatitis
     Route: 061
  2. Clobetasol 5% solution [Concomitant]
  3. KETOCONAZOLE [Concomitant]
     Active Substance: KETOCONAZOLE

REACTIONS (3)
  - Hypersensitivity [None]
  - Skin swelling [None]
  - Skin burning sensation [None]

NARRATIVE: CASE EVENT DATE: 20250808
